FAERS Safety Report 11828650 (Version 1)
Quarter: 2015Q4

REPORT INFORMATION
  Report Type: Spontaneous
  Country: US (occurrence: US)
  Receive Date: 20151211
  Receipt Date: 20151211
  Transmission Date: 20160305
  Serious: No
  Sender: FDA-Public Use
  Company Number: US-JUBILANT CADISTA PHARMACEUTICALS-2015JUB00021

PATIENT
  Sex: Female
  Weight: 63.95 kg

DRUGS (14)
  1. MAGNESIUM [Concomitant]
     Active Substance: MAGNESIUM
     Dosage: UNK, 1X/DAY
  2. PREDNISONE. [Suspect]
     Active Substance: PREDNISONE
     Dosage: 2.5 MG, 2X/DAY
     Route: 048
     Dates: start: 20150122
  3. ZINC [Concomitant]
     Active Substance: ZINC\ZINC CHLORIDE
     Dosage: UNK, 1X/DAY
  4. ASTRAGALUS [Concomitant]
     Dosage: UNK, 1X/DAY
  5. PREDNISONE. [Suspect]
     Active Substance: PREDNISONE
     Indication: ASTHMA
     Dosage: 40 MG, 2X/DAY
     Route: 048
     Dates: start: 201412
  6. MULTIVITAMIN [Concomitant]
     Active Substance: VITAMINS
     Dosage: UNK, 1X/DAY
  7. EYEBRIGHT [Concomitant]
     Dosage: UNK, 1X/DAY
  8. QVAR [Concomitant]
     Active Substance: BECLOMETHASONE DIPROPIONATE
     Dosage: 2 DOSAGE UNITS, 2X/DAY
     Route: 050
     Dates: start: 201410
  9. VITAMIN C [Concomitant]
     Active Substance: ASCORBIC ACID
     Dosage: UNK, 1X/DAY
  10. VITAMIN B6 [Concomitant]
     Active Substance: PYRIDOXINE HYDROCHLORIDE
     Dosage: UNK, 1X/DAY
  11. BLACK ELDERBERRY [Concomitant]
     Dosage: UNK, 1X/DAY
  12. VENTOLIN [Concomitant]
     Active Substance: ALBUTEROL SULFATE
     Dosage: 90 ?G, AS NEEDED
     Dates: start: 2013
  13. METHYLPREDNISOLONE. [Suspect]
     Active Substance: METHYLPREDNISOLONE
     Indication: ASTHMA
     Dosage: 4 MG, UNK
     Route: 048
  14. SPANES7 IMMUNE SUPPORT [Concomitant]
     Dosage: UNK, 1X/DAY

REACTIONS (7)
  - Joint swelling [Recovered/Resolved]
  - Increased appetite [Recovering/Resolving]
  - Peripheral swelling [Recovered/Resolved]
  - Weight increased [Not Recovered/Not Resolved]
  - Swelling face [Recovered/Resolved]
  - Abdominal distension [Unknown]
  - Dizziness [Recovered/Resolved]
